FAERS Safety Report 21937105 (Version 1)
Quarter: 2023Q1

REPORT INFORMATION
  Report Type: Spontaneous
  Country: US (occurrence: None)
  Receive Date: 20230131
  Receipt Date: 20230131
  Transmission Date: 20230418
  Serious: Yes (Hospitalization)
  Sender: FDA-Public Use
  Company Number: None

PATIENT
  Sex: Male

DRUGS (1)
  1. LENALIDOMIDE [Suspect]
     Active Substance: LENALIDOMIDE
     Indication: Plasma cell myeloma
     Dosage: 5 MG ORAL??TAKE 1 CAPSULE (5 MG) BY MOUTH DAILY
     Route: 048
     Dates: start: 20221129

REACTIONS (2)
  - Diarrhoea [None]
  - Therapy interrupted [None]
